FAERS Safety Report 25209930 (Version 2)
Quarter: 2025Q2

REPORT INFORMATION
  Report Type: Spontaneous
  Country: US (occurrence: US)
  Receive Date: 20250417
  Receipt Date: 20250417
  Transmission Date: 20250717
  Serious: No
  Sender: SANDOZ
  Company Number: US-SANDOZ-SDZ2025US023315

PATIENT

DRUGS (1)
  1. ESTRADIOL [Suspect]
     Active Substance: ESTRADIOL
     Indication: Hot flush
     Dosage: 0.05 MG, QD (0.05 MG/DAY)
     Route: 062

REACTIONS (2)
  - Drug ineffective [Unknown]
  - Product adhesion issue [Unknown]
